FAERS Safety Report 4694508-1 (Version None)
Quarter: 2005Q2

REPORT INFORMATION
  Report Type: 
  Country: None (occurrence: None)
  Receive Date: 20050614
  Receipt Date: 20050411
  Transmission Date: 20051028
  Serious: No
  Sender: FDA-Public Use
  Company Number: USA050495286

PATIENT
  Age: 59 Year
  Sex: Male
  Weight: 64 kg

DRUGS (3)
  1. CIALIS [Suspect]
     Indication: ERECTILE DYSFUNCTION
     Dosage: 20 MG
     Dates: start: 20050401
  2. LEVITRA [Concomitant]
  3. TRIMOX [Concomitant]

REACTIONS (3)
  - DRUG INEFFECTIVE [None]
  - SPONTANEOUS PENILE ERECTION [None]
  - THERAPEUTIC RESPONSE DECREASED [None]
